FAERS Safety Report 6505992-2 (Version None)
Quarter: 2009Q4

REPORT INFORMATION
  Report Type: 
  Country: None (occurrence: None)
  Receive Date: 20091201
  Receipt Date: 20081003
  Transmission Date: 20100525
  Serious: Yes (Hospitalization)
  Sender: FDA-Public Use
  Company Number: 2008-185174-NL

PATIENT
  Age: 33 Year
  Sex: Female
  Weight: 59 kg

DRUGS (1)
  1. NUVARING [Suspect]
     Indication: CONTRACEPTION
     Dates: start: 20071001, end: 20080915

REACTIONS (1)
  - PULMONARY EMBOLISM [None]
